FAERS Safety Report 15706768 (Version 3)
Quarter: 2019Q4

REPORT INFORMATION
  Report Type: Report from Study
  Country: US (occurrence: US)
  Receive Date: 20181210
  Receipt Date: 20191220
  Transmission Date: 20200122
  Serious: Yes (Death, Hospitalization, Other)
  Sender: FDA-Public Use
  Company Number: US-ACTELION-A-US2018-167029

PATIENT
  Age: 73 Year
  Sex: Female
  Weight: 63.49 kg

DRUGS (19)
  1. UPTRAVI [Suspect]
     Active Substance: SELEXIPAG
     Indication: PULMONARY ARTERIAL HYPERTENSION
     Dosage: 600 MCG, BID
     Route: 048
     Dates: start: 20160722
  2. METOPROLOL. [Concomitant]
     Active Substance: METOPROLOL
  3. ATORVASTATIN [Concomitant]
     Active Substance: ATORVASTATIN
  4. POTASSIUM CHLORIDE. [Concomitant]
     Active Substance: POTASSIUM CHLORIDE
     Dosage: UNK
     Dates: start: 20180219
  5. SPIRONOLACTONE. [Concomitant]
     Active Substance: SPIRONOLACTONE
  6. ALLOPURINOL. [Concomitant]
     Active Substance: ALLOPURINOL
  7. CHOLESTYRAMINE. [Concomitant]
     Active Substance: CHOLESTYRAMINE
  8. FOLIC ACID. [Concomitant]
     Active Substance: FOLIC ACID
  9. OMEGA 3 ACID ETHYL ESTERS [Concomitant]
     Active Substance: OMEGA-3-ACID ETHYL ESTERS
  10. TADALAFIL. [Concomitant]
     Active Substance: TADALAFIL
  11. UPTRAVI [Suspect]
     Active Substance: SELEXIPAG
     Dosage: 600 MCG, UNK
     Route: 048
     Dates: start: 20160203
  12. FUROSEMIDE. [Concomitant]
     Active Substance: FUROSEMIDE
     Dosage: 80 MG, BID
  13. ESTRADIOL. [Concomitant]
     Active Substance: ESTRADIOL
     Dosage: UNK
     Dates: start: 20180514
  14. DIGOXIN. [Concomitant]
     Active Substance: DIGOXIN
  15. LOSARTAN. [Concomitant]
     Active Substance: LOSARTAN
  16. OMEPRAZOLE. [Concomitant]
     Active Substance: OMEPRAZOLE
     Dosage: UNK
     Dates: start: 20180507
  17. WARFARIN [Concomitant]
     Active Substance: WARFARIN
     Dosage: UNK
     Dates: start: 20180416
  18. FUROSEMIDE. [Concomitant]
     Active Substance: FUROSEMIDE
     Dosage: UNK
     Dates: start: 20180416
  19. DIPHENHYDRAMINE W/IBUPROFEN [Concomitant]
     Active Substance: DIPHENHYDRAMINE HYDROCHLORIDE\IBUPROFEN

REACTIONS (23)
  - Road traffic accident [Fatal]
  - Headache [Recovered/Resolved]
  - Anaemia [Recovered/Resolved]
  - Cardiac failure congestive [Recovered/Resolved]
  - Muscular weakness [Recovered/Resolved]
  - Hepatic cirrhosis [Not Recovered/Not Resolved]
  - Brain natriuretic peptide increased [Recovered/Resolved]
  - Haemoglobin decreased [Unknown]
  - Chest pain [Recovered/Resolved]
  - Acute left ventricular failure [Recovered/Resolved]
  - Blood creatinine increased [Unknown]
  - Rectal haemorrhage [Recovered/Resolved]
  - Portal hypertension [Not Recovered/Not Resolved]
  - Vaginal haemorrhage [Unknown]
  - Atrial fibrillation [Recovered/Resolved]
  - Hepatomegaly [Not Recovered/Not Resolved]
  - Pain in extremity [Recovered/Resolved]
  - Functional gastrointestinal disorder [Unknown]
  - Platelet count decreased [Unknown]
  - Haematocrit decreased [Unknown]
  - Blood urea increased [Unknown]
  - Prothrombin time prolonged [Unknown]
  - International normalised ratio increased [Unknown]

NARRATIVE: CASE EVENT DATE: 20171102
